FAERS Safety Report 8102026-3 (Version None)
Quarter: 2012Q1

REPORT INFORMATION
  Report Type: 
  Country: None (occurrence: None)
  Receive Date: 20120131
  Receipt Date: 20120126
  Transmission Date: 20120608
  Serious: Yes (Death)
  Sender: FDA-Public Use
  Company Number: PHEH2011US07893

PATIENT
  Sex: Female

DRUGS (4)
  1. GILENYA [Suspect]
     Indication: MULTIPLE SCLEROSIS
     Dosage: 0.5 MG, DAILY
     Route: 048
     Dates: start: 20110301
  2. DURAGESIC-100 [Concomitant]
     Dosage: 7.5 MG, Q72H
     Route: 062
  3. FAMPRIDINE [Concomitant]
     Indication: MULTIPLE SCLEROSIS
     Dosage: 10 MG, BID
     Route: 048
     Dates: start: 20100101
  4. VICODIN ES [Concomitant]
     Dosage: 7.5(HYDROCODONE BITARTARATE)+250(PARACETAMOL)
     Route: 048

REACTIONS (1)
  - MULTIPLE SCLEROSIS [None]
